FAERS Safety Report 9846135 (Version 2)
Quarter: 2014Q2

REPORT INFORMATION
  Report Type: Spontaneous
  Country: US (occurrence: US)
  Receive Date: 20140127
  Receipt Date: 20140424
  Transmission Date: 20141212
  Serious: Yes (Other)
  Sender: FDA-Public Use
  Company Number: US-GILEAD-2014-0092950

PATIENT
  Sex: Female

DRUGS (3)
  1. LETAIRIS [Suspect]
     Indication: PULMONARY HYPERTENSION
     Dosage: 10 MG, QD
     Route: 065
     Dates: start: 20130828
  2. LETAIRIS [Suspect]
     Indication: SCLERODERMA
  3. ADCIRCA [Concomitant]

REACTIONS (5)
  - Deafness [Unknown]
  - Epistaxis [Unknown]
  - Tinnitus [Not Recovered/Not Resolved]
  - Dyspnoea [Unknown]
  - Nasal congestion [Unknown]
